FAERS Safety Report 5147484-1 (Version None)
Quarter: 2006Q4

REPORT INFORMATION
  Report Type: 
  Country: None (occurrence: None)
  Receive Date: 20061109
  Receipt Date: 20060830
  Transmission Date: 20070319
  Serious: Yes (Death, Hospitalization, Other)
  Sender: FDA-Public Use
  Company Number: US-ABBOTT-06P-163-0343081-00

PATIENT
  Sex: Female

DRUGS (5)
  1. NORVIR [Suspect]
     Indication: HIV INFECTION
     Dates: start: 20010101
  2. NORVIR [Suspect]
     Dates: end: 20060821
  3. STAVUDINE [Concomitant]
     Indication: DRUG USE FOR UNKNOWN INDICATION
     Route: 048
  4. DIDANOSINE [Concomitant]
     Indication: DRUG USE FOR UNKNOWN INDICATION
  5. OMEPRAZOLE [Concomitant]
     Indication: GASTROOESOPHAGEAL REFLUX DISEASE

REACTIONS (36)
  - ABDOMINAL COMPARTMENT SYNDROME [None]
  - ABDOMINAL DISCOMFORT [None]
  - AGITATION [None]
  - ANAEMIA [None]
  - ANURIA [None]
  - ASCITES [None]
  - ASTHENIA [None]
  - BACK PAIN [None]
  - CD4 LYMPHOCYTES ABNORMAL [None]
  - CHILLS [None]
  - CHOLELITHIASIS [None]
  - DISSEMINATED INTRAVASCULAR COAGULATION [None]
  - EPISTAXIS [None]
  - FACE OEDEMA [None]
  - GASTROINTESTINAL DISORDER [None]
  - GASTROINTESTINAL HAEMORRHAGE [None]
  - HAEMATEMESIS [None]
  - HAEMATOCHEZIA [None]
  - HEPATIC FAILURE [None]
  - HYPOTENSION [None]
  - HYPOVOLAEMIA [None]
  - JAUNDICE [None]
  - LACTIC ACIDOSIS [None]
  - LEUKOCYTOSIS [None]
  - LIVER FUNCTION TEST ABNORMAL [None]
  - MELAENA [None]
  - NAUSEA [None]
  - RENAL FAILURE ACUTE [None]
  - RENAL TUBULAR NECROSIS [None]
  - RESPIRATORY FAILURE [None]
  - SEPSIS [None]
  - SWELLING [None]
  - SWOLLEN TONGUE [None]
  - UNRESPONSIVE TO STIMULI [None]
  - VARICES OESOPHAGEAL [None]
  - VIRAL LOAD INCREASED [None]
